FAERS Safety Report 8955357 (Version 1)
Quarter: 2012Q4

REPORT INFORMATION
  Report Type: 
  Country: US (occurrence: US)
  Receive Date: 20121207
  Receipt Date: 20121207
  Transmission Date: 20130627
  Serious: Yes (Other)
  Sender: FDA-Public Use
  Company Number: US-ROCHE-1165501

PATIENT
  Age: 61 Year
  Sex: Female
  Weight: 77.23 kg

DRUGS (3)
  1. CAPECITABINE [Suspect]
     Indication: PRODUCT USED FOR UNKNOWN INDICATION
     Route: 065
  2. AMOXICILLIN TRIHYDRATE [Suspect]
     Indication: BRONCHITIS
     Route: 048
  3. LAPATINIB [Suspect]
     Indication: BREAST CANCER
     Route: 048
     Dates: start: 20120723

REACTIONS (11)
  - Fatigue [Unknown]
  - Palmar-plantar erythrodysaesthesia syndrome [Unknown]
  - Emotional disorder [Unknown]
  - Blister [Unknown]
  - Skin ulcer [Unknown]
  - Bronchitis [Unknown]
  - Weight decreased [Unknown]
  - Diarrhoea [Unknown]
  - Ulcer haemorrhage [Unknown]
  - Palmar-plantar erythrodysaesthesia syndrome [Unknown]
  - Feeling abnormal [Unknown]
